FAERS Safety Report 8848885 (Version 2)
Quarter: 2013Q1

REPORT INFORMATION
  Report Type: Spontaneous
  Country: US (occurrence: None)
  Receive Date: 20121015
  Receipt Date: 20121226
  Transmission Date: 20140127
  Serious: Yes (Hospitalization, Other)
  Sender: FDA-Public Use
  Company Number: ACO_30912_2012

PATIENT
  Age: 56 Year
  Sex: Male
  Weight: 98.9 kg

DRUGS (6)
  1. AMPYRA [Suspect]
     Indication: MULTIPLE SCLEROSIS
     Route: 048
     Dates: start: 201007
  2. REBIF (INTERFERON BETA-1A) [Concomitant]
  3. TOPROL (METOPROLOL SUCCINATE) [Concomitant]
  4. PROVIGIL (MODAFINIL) [Concomitant]
  5. VESICARE (SOLIFENACIN SUCCINATE) [Concomitant]
  6. FLOMAX (TAMSULOSIN HYDROCHLORIDE) [Concomitant]

REACTIONS (5)
  - Cystitis [None]
  - Urosepsis [None]
  - Urinary retention [None]
  - Aspartate aminotransferase increased [None]
  - Alanine aminotransferase increased [None]
